FAERS Safety Report 15198337 (Version 1)
Quarter: 2018Q3

REPORT INFORMATION
  Report Type: Spontaneous
  Country: US (occurrence: US)
  Receive Date: 20180725
  Receipt Date: 20180725
  Transmission Date: 20181010
  Serious: Yes (Other)
  Sender: FDA-Public Use
  Company Number: US-SEATTLE GENETICS-2018SGN01751

PATIENT
  Age: 60 Year
  Sex: Female

DRUGS (1)
  1. ADCETRIS [Suspect]
     Active Substance: BRENTUXIMAB VEDOTIN
     Indication: ANAPLASTIC LARGE-CELL LYMPHOMA
     Dosage: UNK, EVERY 2 MONTHS
     Route: 065
     Dates: start: 2015

REACTIONS (3)
  - Multiple fractures [Unknown]
  - Osteoporosis [Unknown]
  - Neuropathy peripheral [Unknown]
